FAERS Safety Report 4615785-9 (Version None)
Quarter: 2005Q1

REPORT INFORMATION
  Report Type: 
  Country: None (occurrence: None)
  Receive Date: 20050317
  Receipt Date: 20050205
  Transmission Date: 20050727
  Serious: Yes (Life-Threatening, Hospitalization)
  Sender: FDA-Public Use
  Company Number: 2005S1000460

PATIENT
  Age: 54 Year
  Sex: Male
  Weight: 75.6 kg

DRUGS (7)
  1. CLOZAPINE [Suspect]
     Indication: SCHIZOPHRENIA
     Dosage: SEE IMAGE
     Route: 048
     Dates: end: 20050114
  2. CLOZAPINE [Suspect]
     Indication: SCHIZOPHRENIA
     Dosage: SEE IMAGE
     Route: 048
     Dates: end: 20050114
  3. ATENOLOL [Concomitant]
  4. PAROXETINE HCL [Concomitant]
  5. HYDROCHLORIDE CR [Concomitant]
  6. QUETIAPINE [Concomitant]
  7. GEMFIBROZIL [Concomitant]

REACTIONS (7)
  - BLOOD CREATININE INCREASED [None]
  - CONFUSIONAL STATE [None]
  - DIABETIC KETOACIDOSIS [None]
  - MULTI-ORGAN FAILURE [None]
  - PNEUMONIA STREPTOCOCCAL [None]
  - SEPSIS [None]
  - WHITE BLOOD CELL COUNT DECREASED [None]
